FAERS Safety Report 8481332-7 (Version None)
Quarter: 2012Q3

REPORT INFORMATION
  Report Type: 
  Country: None (occurrence: None)
  Receive Date: 20120702
  Receipt Date: 20120622
  Transmission Date: 20120928
  Serious: Yes (Hospitalization, Other)
  Sender: FDA-Public Use
  Company Number: US-JNJFOC-20120612626

PATIENT
  Sex: Female
  Weight: 59.88 kg

DRUGS (6)
  1. DURAGESIC-100 [Suspect]
     Route: 062
     Dates: start: 20110101
  2. COUMADIN [Concomitant]
     Indication: ANTICOAGULANT THERAPY
     Route: 048
     Dates: start: 20050101
  3. DURAGESIC-100 [Suspect]
     Route: 062
     Dates: start: 20090101, end: 20110101
  4. FENTANYL-100 [Suspect]
     Indication: PAIN
     Route: 062
     Dates: start: 20060101, end: 20070101
  5. FENTANYL-100 [Suspect]
     Route: 062
     Dates: start: 20110101, end: 20110101
  6. DURAGESIC-100 [Suspect]
     Indication: PAIN
     Route: 062
     Dates: start: 20070101, end: 20091201

REACTIONS (12)
  - PRODUCT QUALITY ISSUE [None]
  - APPLICATION SITE RASH [None]
  - PRURITUS [None]
  - EXTRASYSTOLES [None]
  - CEREBROVASCULAR ACCIDENT [None]
  - HYPERHIDROSIS [None]
  - WITHDRAWAL SYNDROME [None]
  - DERMATITIS CONTACT [None]
  - MYOCARDIAL INFARCTION [None]
  - CORONARY ARTERY OCCLUSION [None]
  - RASH [None]
  - INCORRECT DRUG ADMINISTRATION DURATION [None]
